FAERS Safety Report 7411385-6 (Version None)
Quarter: 2011Q2

REPORT INFORMATION
  Report Type: 
  Country: None (occurrence: None)
  Receive Date: 20110413
  Receipt Date: 20100707
  Transmission Date: 20111010
  Serious: Yes (Other)
  Sender: FDA-Public Use
  Company Number: US-BRISTOL-MYERS SQUIBB COMPANY-15182496

PATIENT
  Age: 73 Year
  Sex: Male

DRUGS (3)
  1. BENADRYL [Concomitant]
     Indication: PREMEDICATION
     Route: 042
  2. DECADRON [Concomitant]
     Indication: PREMEDICATION
     Route: 042
  3. ERBITUX [Suspect]
     Indication: LIP AND/OR ORAL CAVITY CANCER
     Dosage: 400MG/M2
     Route: 042
     Dates: start: 20100702

REACTIONS (1)
  - INFUSION RELATED REACTION [None]
